FAERS Safety Report 12820745 (Version 1)
Quarter: 2016Q4

REPORT INFORMATION
  Report Type: Report from Study
  Country: US (occurrence: US)
  Receive Date: 20161007
  Receipt Date: 20161007
  Transmission Date: 20170207
  Serious: Yes (Death, Hospitalization, Other)
  Sender: FDA-Public Use
  Company Number: US-ROCHE-1175288

PATIENT
  Age: 65 Year
  Sex: Female
  Weight: 61.8 kg

DRUGS (4)
  1. BEVACIZUMAB [Suspect]
     Active Substance: BEVACIZUMAB
     Indication: OVARIAN EPITHELIAL CANCER
     Dosage: LAST DOSE PRIOR TO SAE: 28/NOV/2012, 15 MG/KG OVER 30-90 MIN ON DAY 1
     Route: 042
     Dates: start: 20121105
  2. CISPLATIN. [Suspect]
     Active Substance: CISPLATIN
     Indication: OVARIAN EPITHELIAL CANCER
     Dosage: DATEOF LAST DOSE PRIOR TO SAE: 30/NOV/2012, 75 MG/M2 DAY 1 0R 2
     Route: 033
     Dates: start: 20121105
  3. PACLITAXEL. [Suspect]
     Active Substance: PACLITAXEL
     Indication: OVARIAN EPITHELIAL CANCER
     Dosage: DATE OF LAST DOSE PRIOR TO SAE: 28/NOV/2012, 6- MG/M2 DAY 8
     Route: 033
     Dates: start: 20121105
  4. ABT-888 [Suspect]
     Active Substance: VELIPARIB
     Indication: OVARIAN EPITHELIAL CANCER
     Dosage: LAST DOSE PRIOR TO SAE: 10/DEC/2012, ON DAY 1-21
     Route: 048

REACTIONS (22)
  - Hypermagnesaemia [Unknown]
  - Hypokalaemia [Unknown]
  - White blood cell count decreased [Unknown]
  - Hypomagnesaemia [Unknown]
  - Hyperglycaemia [Unknown]
  - White blood cell count decreased [Unknown]
  - Hypokalaemia [Unknown]
  - Hypocalcaemia [Unknown]
  - Hypophosphataemia [Unknown]
  - Neutrophil count decreased [Unknown]
  - Hypercalcaemia [Unknown]
  - Sepsis [Unknown]
  - Neutrophil count decreased [Unknown]
  - Hypocalcaemia [Unknown]
  - Platelet count decreased [Unknown]
  - Platelet count decreased [Unknown]
  - Hyperglycaemia [Unknown]
  - Hypoalbuminaemia [Unknown]
  - Sepsis [Fatal]
  - Dehydration [Unknown]
  - Dehydration [Unknown]
  - Hyponatraemia [Unknown]

NARRATIVE: CASE EVENT DATE: 20121211
